FAERS Safety Report 12579452 (Version 1)
Quarter: 2016Q3

REPORT INFORMATION
  Report Type: Spontaneous
  Country: US (occurrence: US)
  Receive Date: 20160721
  Receipt Date: 20160721
  Transmission Date: 20161109
  Serious: No
  Sender: FDA-Public Use
  Company Number: US-TRIS PHARMA, INC.-1055357

PATIENT
  Age: 78 Year
  Sex: Male
  Weight: 75 kg

DRUGS (3)
  1. DEXTROMETHORPHAN POLISTIREX ER OS 6 MG/ML [Suspect]
     Active Substance: DEXTROMETHORPHAN HYDROBROMIDE
     Indication: PULMONARY CONGESTION
     Route: 048
     Dates: start: 20151124, end: 20151124
  2. SIMVASTATIN. [Concomitant]
     Active Substance: SIMVASTATIN
  3. METFORMIN [Concomitant]
     Active Substance: METFORMIN HYDROCHLORIDE
     Dates: start: 201509

REACTIONS (6)
  - Contusion [None]
  - Epistaxis [None]
  - Loose tooth [None]
  - Hypersensitivity [None]
  - Excoriation [None]
  - Pain in jaw [None]

NARRATIVE: CASE EVENT DATE: 20151124
